FAERS Safety Report 6525919-7 (Version None)
Quarter: 2010Q1

REPORT INFORMATION
  Report Type: 
  Country: None (occurrence: None)
  Receive Date: 20100104
  Receipt Date: 20091223
  Transmission Date: 20100710
  Serious: Yes (Hospitalization, Other)
  Sender: FDA-Public Use
  Company Number: US-PFIZER INC-001-0945-970409

PATIENT
  Age: 66 Year
  Sex: Female

DRUGS (2)
  1. NEURONTIN [Suspect]
     Indication: CONVULSION
     Dosage: 6 CAPSULES DAILY
     Route: 048
     Dates: start: 19950101
  2. PHENOBARBITAL [Concomitant]
     Dosage: UNK

REACTIONS (6)
  - CHOLECYSTECTOMY [None]
  - CONVULSION [None]
  - DRUG ADMINISTRATION ERROR [None]
  - MYALGIA [None]
  - NASOPHARYNGITIS [None]
  - STRESS [None]
